FAERS Safety Report 5972048-7 (Version None)
Quarter: 2008Q4

REPORT INFORMATION
  Report Type: 
  Country: None (occurrence: None)
  Receive Date: 20081201
  Receipt Date: 20080222
  Transmission Date: 20090506
  Serious: No
  Sender: FDA-Public Use
  Company Number: US-TEVA-167868USA

PATIENT
  Sex: Female

DRUGS (6)
  1. SALBUTAMOL SULFATE INHALATION, 0.09 MG [Suspect]
     Indication: BRONCHITIS
     Route: 055
     Dates: start: 20080204, end: 20080205
  2. STEROID [Concomitant]
     Dates: start: 20080201, end: 20080201
  3. METFORMIN HCL [Concomitant]
     Indication: DIABETES MELLITUS
  4. LISINOPRIL [Concomitant]
  5. LEVOTHYROXINE SODIUM [Concomitant]
  6. VITAMINS NOS [Concomitant]

REACTIONS (5)
  - COUGH [None]
  - GLOSSODYNIA [None]
  - LYMPHADENOPATHY [None]
  - ORAL DISCOMFORT [None]
  - SWOLLEN TONGUE [None]
